FAERS Safety Report 9192228 (Version 2)
Quarter: 2013Q2

REPORT INFORMATION
  Report Type: Spontaneous
  Country: FR (occurrence: FR)
  Receive Date: 20130327
  Receipt Date: 20130520
  Transmission Date: 20140414
  Serious: Yes (Other)
  Sender: FDA-Public Use
  Company Number: FR-AMGEN-FRASP2013020267

PATIENT
  Sex: Female
  Weight: 68 kg

DRUGS (2)
  1. XGEVA [Suspect]
     Indication: METASTASES TO BONE
     Dosage: 120 MG, QMO
     Route: 058
     Dates: start: 20130222
  2. XELODA [Concomitant]
     Dosage: 2000 MG, UNK
     Route: 048
     Dates: start: 2012, end: 2013

REACTIONS (1)
  - Jugular vein thrombosis [Recovering/Resolving]
